FAERS Safety Report 5004223-2 (Version None)
Quarter: 2006Q2

REPORT INFORMATION
  Report Type: 
  Country: None (occurrence: None)
  Receive Date: 20060517
  Receipt Date: 20050218
  Transmission Date: 20061013
  Serious: Yes (Hospitalization, Disabling)
  Sender: FDA-Public Use
  Company Number: US-MERCK-0503USA00615

PATIENT
  Age: 50 Year
  Sex: Male
  Weight: 89 kg

DRUGS (2)
  1. VIOXX [Suspect]
     Indication: ARTHRITIS
     Route: 048
     Dates: start: 20020212, end: 20030210
  2. VIOXX [Suspect]
     Route: 048
     Dates: start: 20020212, end: 20030210

REACTIONS (6)
  - ANEURYSM [None]
  - HEADACHE [None]
  - HYPOAESTHESIA [None]
  - INTRACRANIAL ANEURYSM [None]
  - MIGRAINE [None]
  - THROMBOSIS [None]
